FAERS Safety Report 11630534 (Version 1)
Quarter: 2015Q4

REPORT INFORMATION
  Report Type: Spontaneous
  Country: US (occurrence: US)
  Receive Date: 20151014
  Receipt Date: 20151014
  Transmission Date: 20160304
  Serious: No
  Sender: FDA-Public Use
  Company Number: US-UNICHEM LABORATORIES LIMITED-UCM201508-000595

PATIENT
  Sex: Female
  Weight: 73.48 kg

DRUGS (4)
  1. HYDROCHLOROTHIAZIDE. [Suspect]
     Active Substance: HYDROCHLOROTHIAZIDE
     Indication: HYPERTENSION
     Route: 048
  2. OMEPRAZOLE DR [Concomitant]
     Active Substance: OMEPRAZOLE
  3. LOSARTAN. [Concomitant]
     Active Substance: LOSARTAN
     Indication: HYPERTENSION
  4. TRAMADOL. [Concomitant]
     Active Substance: TRAMADOL

REACTIONS (4)
  - Insomnia [Not Recovered/Not Resolved]
  - Somnolence [Not Recovered/Not Resolved]
  - Malaise [Not Recovered/Not Resolved]
  - Heart rate increased [Not Recovered/Not Resolved]
